FAERS Safety Report 18445695 (Version 1)
Quarter: 2020Q4

REPORT INFORMATION
  Report Type: Spontaneous
  Country: CN (occurrence: CN)
  Receive Date: 20201030
  Receipt Date: 20201030
  Transmission Date: 20210114
  Serious: Yes (Other)
  Sender: FDA-Public Use
  Company Number: CN-ASTRAZENECA-2020SF40897

PATIENT
  Age: 22471 Day
  Sex: Female

DRUGS (6)
  1. DOXOFYLLINE [Concomitant]
     Active Substance: DOXOFYLLINE
     Indication: MUSCLE SPASMS
     Route: 048
     Dates: start: 20201013, end: 20201021
  2. COMPOUND IPRATROPIUM BROMIDE SOLUTION FOR INHALATION [Suspect]
     Active Substance: IPRATROPIUM BROMIDE
     Indication: ASTHMA
     Route: 055
     Dates: start: 20201013, end: 20201013
  3. COMPOUND IPRATROPIUM BROMIDE SOLUTION FOR INHALATION [Suspect]
     Active Substance: IPRATROPIUM BROMIDE
     Indication: MUSCLE SPASMS
     Route: 055
     Dates: start: 20201013, end: 20201013
  4. DOXOFYLLINE [Concomitant]
     Active Substance: DOXOFYLLINE
     Indication: ASTHMA
     Route: 048
     Dates: start: 20201013, end: 20201021
  5. AMBROXOL HYDROCHLORIDE [Concomitant]
     Active Substance: AMBROXOL HYDROCHLORIDE
     Indication: PRODUCTIVE COUGH
     Route: 048
     Dates: start: 20201013, end: 20201021
  6. BUDESONIDE SUSPENSION [Suspect]
     Active Substance: BUDESONIDE
     Indication: ANTIINFLAMMATORY THERAPY
     Route: 055
     Dates: start: 20201013, end: 20201013

REACTIONS (2)
  - Dyspnoea [Recovering/Resolving]
  - Hyperhidrosis [Recovering/Resolving]

NARRATIVE: CASE EVENT DATE: 20201013
